FAERS Safety Report 11116072 (Version 1)
Quarter: 2015Q2

REPORT INFORMATION
  Report Type: Spontaneous
  Country: US (occurrence: None)
  Receive Date: 20150514
  Receipt Date: 20150514
  Transmission Date: 20150821
  Serious: No
  Sender: FDA-Public Use
  Company Number: None

PATIENT
  Age: 48 Year
  Sex: Female

DRUGS (7)
  1. FLUOXETINE [Concomitant]
     Active Substance: FLUOXETINE\FLUOXETINE HYDROCHLORIDE
  2. AMPYRA [Suspect]
     Active Substance: DALFAMPRIDINE
     Indication: MULTIPLE SCLEROSIS
     Route: 048
     Dates: start: 20100526
  3. BACLOFEN. [Concomitant]
     Active Substance: BACLOFEN
  4. RITUXIMAB [Concomitant]
     Active Substance: RITUXIMAB
  5. ELIDEL [Concomitant]
     Active Substance: PIMECROLIMUS
  6. DIAZEPAM. [Concomitant]
     Active Substance: DIAZEPAM
  7. OTC ADVIL PM [Concomitant]

REACTIONS (1)
  - Laboratory test abnormal [None]

NARRATIVE: CASE EVENT DATE: 20150401
